FAERS Safety Report 14088406 (Version 2)
Quarter: 2017Q4

REPORT INFORMATION
  Report Type: Spontaneous
  Country: US (occurrence: US)
  Receive Date: 20171013
  Receipt Date: 20171030
  Transmission Date: 20180321
  Serious: Yes (Hospitalization, Other)
  Sender: FDA-Public Use
  Company Number: US-ACTELION-A-US2017-160857

PATIENT
  Age: 51 Year
  Sex: Female
  Weight: 68.93 kg

DRUGS (17)
  1. ASPIRIN. [Concomitant]
     Active Substance: ASPIRIN
  2. MILRINONE [Concomitant]
     Active Substance: MILRINONE
     Route: 042
  3. ULTRAM [Concomitant]
     Active Substance: TRAMADOL HYDROCHLORIDE
  4. REVATIO [Concomitant]
     Active Substance: SILDENAFIL CITRATE
     Dosage: 20 MG, TID
  5. MUCINEX [Concomitant]
     Active Substance: GUAIFENESIN
  6. AMIODARONE [Concomitant]
     Active Substance: AMIODARONE
     Dosage: 200 MG, QD
  7. LOPRESSOR [Concomitant]
     Active Substance: METOPROLOL TARTRATE
  8. LASIX [Concomitant]
     Active Substance: FUROSEMIDE
  9. IRON [Concomitant]
     Active Substance: IRON
  10. COZAAR [Concomitant]
     Active Substance: LOSARTAN POTASSIUM
  11. MAGNESIUM OXIDE. [Concomitant]
     Active Substance: MAGNESIUM OXIDE
  12. ALDACTONE [Concomitant]
     Active Substance: SPIRONOLACTONE
  13. WARFARIN [Concomitant]
     Active Substance: WARFARIN
  14. LOVENOX [Concomitant]
     Active Substance: ENOXAPARIN SODIUM
  15. UPTRAVI [Suspect]
     Active Substance: SELEXIPAG
     Indication: PULMONARY ARTERIAL HYPERTENSION
     Dosage: 1400 MCG, BID
     Route: 048
     Dates: start: 20160616
  16. UPTRAVI [Suspect]
     Active Substance: SELEXIPAG
     Dosage: 1000 MCG, BID
     Route: 048
     Dates: start: 2017
  17. DIGOXIN. [Concomitant]
     Active Substance: DIGOXIN

REACTIONS (4)
  - Weight decreased [Unknown]
  - Mastectomy [Recovering/Resolving]
  - Headache [Unknown]
  - Breast cancer [Recovering/Resolving]

NARRATIVE: CASE EVENT DATE: 201707
